FAERS Safety Report 7578584-4 (Version None)
Quarter: 2011Q2

REPORT INFORMATION
  Report Type: 
  Country: None (occurrence: None)
  Receive Date: 20110628
  Receipt Date: 20110623
  Transmission Date: 20111010
  Serious: Yes (Hospitalization)
  Sender: FDA-Public Use
  Company Number: FR-PFIZER INC-2011139342

PATIENT
  Age: 80 Year
  Sex: Female

DRUGS (10)
  1. AMLODIPINE [Concomitant]
     Dosage: 5 MG, 1X/DAY
     Route: 048
  2. ACETAMINOPHEN [Concomitant]
     Dosage: 1 G, 4X/DAY
     Route: 048
  3. LASIX [Concomitant]
     Dosage: 40 MG, 1X/DAY
     Route: 048
     Dates: end: 20110604
  4. ZOLPIDEM [Concomitant]
     Dosage: 10 MG, 1X/DAY
     Route: 048
  5. PROPRANOLOL [Concomitant]
     Dosage: 160 MG, 1X/DAY
     Route: 048
  6. VALSARTAN [Concomitant]
     Dosage: 40 MG, 1X/DAY
     Route: 048
     Dates: end: 20110605
  7. ESIDRIX [Concomitant]
     Dosage: 25 MG, 3 TIMES A WEEK
     Route: 048
     Dates: end: 20110604
  8. LYRICA [Suspect]
     Indication: BACK PAIN
     Dosage: 150 MG, 1X/DAY
     Route: 048
     Dates: start: 20110530, end: 20110604
  9. MYOLASTAN [Suspect]
     Indication: BACK PAIN
     Dosage: 2 DF, 1X/DAY
     Route: 048
     Dates: start: 20110530, end: 20110604
  10. FERROUS SULFATE TAB [Concomitant]
     Dosage: 80 MG, 1X/DAY
     Route: 048

REACTIONS (10)
  - DISORIENTATION [None]
  - ASTERIXIS [None]
  - CULTURE URINE POSITIVE [None]
  - BLOOD UREA INCREASED [None]
  - BLOOD CREATININE INCREASED [None]
  - CONFUSIONAL STATE [None]
  - MUSCULAR WEAKNESS [None]
  - ARTHROPATHY [None]
  - TREMOR [None]
  - ESCHERICHIA INFECTION [None]
